FAERS Safety Report 7510141-8 (Version None)
Quarter: 2011Q2

REPORT INFORMATION
  Report Type: 
  Country: None (occurrence: None)
  Receive Date: 20110527
  Receipt Date: 20110518
  Transmission Date: 20111010
  Serious: Yes (Other)
  Sender: FDA-Public Use
  Company Number: US-ASTRAZENECA-2011SE31164

PATIENT
  Sex: Male
  Weight: 40.3 kg

DRUGS (15)
  1. SEROQUEL XR [Suspect]
     Route: 048
  2. SEROQUEL XR [Suspect]
     Route: 048
  3. SEROQUEL XR [Suspect]
     Route: 048
  4. SEROQUEL XR [Suspect]
     Route: 048
  5. SEROQUEL XR [Suspect]
     Route: 048
  6. SEROQUEL XR [Suspect]
     Route: 048
  7. SEROQUEL XR [Suspect]
     Indication: SLEEP DISORDER
     Route: 048
     Dates: start: 20101028
  8. SEROQUEL XR [Suspect]
     Route: 048
  9. SEROQUEL XR [Suspect]
     Route: 048
  10. SEROQUEL XR [Suspect]
     Indication: BIPOLAR DISORDER
     Route: 048
     Dates: start: 20101028
  11. SEROQUEL XR [Suspect]
     Route: 048
  12. FOCALIN XR [Suspect]
  13. SEROQUEL XR [Suspect]
     Route: 048
  14. SEROQUEL XR [Suspect]
     Route: 048
  15. SEROQUEL XR [Suspect]
     Route: 048

REACTIONS (44)
  - INDIFFERENCE [None]
  - MOOD ALTERED [None]
  - NASAL CONGESTION [None]
  - SEDATION [None]
  - VIOLENCE-RELATED SYMPTOM [None]
  - HYPERSEXUALITY [None]
  - IMPATIENCE [None]
  - ANGER [None]
  - IRRITABILITY [None]
  - HALLUCINATION, VISUAL [None]
  - BOREDOM [None]
  - COMPULSIVE SHOPPING [None]
  - TARDIVE DYSKINESIA [None]
  - RESTLESSNESS [None]
  - SLEEP DISORDER [None]
  - THINKING ABNORMAL [None]
  - CONFUSIONAL STATE [None]
  - DELUSION [None]
  - AGITATION [None]
  - SELF-INJURIOUS IDEATION [None]
  - HOMICIDAL IDEATION [None]
  - NEGATIVISM [None]
  - AGGRESSION [None]
  - DISTRACTIBILITY [None]
  - IMPULSIVE BEHAVIOUR [None]
  - ABNORMAL BEHAVIOUR [None]
  - SOMNOLENCE [None]
  - ATTENTION DEFICIT/HYPERACTIVITY DISORDER [None]
  - INSOMNIA [None]
  - ABDOMINAL PAIN UPPER [None]
  - NAUSEA [None]
  - MALAISE [None]
  - DISTURBANCE IN ATTENTION [None]
  - WEIGHT INCREASED [None]
  - FATIGUE [None]
  - WRONG TECHNIQUE IN DRUG USAGE PROCESS [None]
  - ANTISOCIAL BEHAVIOUR [None]
  - OPPOSITIONAL DEFIANT DISORDER [None]
  - AFFECTIVE DISORDER [None]
  - MOOD SWINGS [None]
  - NIGHTMARE [None]
  - SUICIDAL IDEATION [None]
  - VERBAL ABUSE [None]
  - PSYCHOMOTOR HYPERACTIVITY [None]
